FAERS Safety Report 12079499 (Version 1)
Quarter: 2016Q1

REPORT INFORMATION
  Report Type: Spontaneous
  Country: US (occurrence: None)
  Receive Date: 20160212
  Receipt Date: 20160212
  Transmission Date: 20160526
  Serious: No
  Sender: FDA-Public Use
  Company Number: None

PATIENT
  Age: 56 Year
  Sex: Female
  Weight: 51.26 kg

DRUGS (4)
  1. SULINDAC. [Concomitant]
     Active Substance: SULINDAC
  2. AMLODIPINE [Concomitant]
     Active Substance: AMLODIPINE BESYLATE
  3. COR135 AMPHETAMINE 20MG COREPHARMA LLC [Suspect]
     Active Substance: AMPHETAMINE ASPARTATE\AMPHETAMINE SULFATE\DEXTROAMPHETAMINE SACCHARATE\DEXTROAMPHETAMINE SULFATE
     Indication: ATTENTION DEFICIT/HYPERACTIVITY DISORDER
     Route: 048
     Dates: start: 20160209, end: 20160211
  4. LORATADINE. [Concomitant]
     Active Substance: LORATADINE

REACTIONS (6)
  - Product substitution issue [None]
  - Swollen tongue [None]
  - Lip swelling [None]
  - Irritability [None]
  - Paraesthesia oral [None]
  - Mood swings [None]

NARRATIVE: CASE EVENT DATE: 20160211
